FAERS Safety Report 9396726 (Version 1)
Quarter: 2013Q3

REPORT INFORMATION
  Report Type: Spontaneous
  Country: US (occurrence: US)
  Receive Date: 20130712
  Receipt Date: 20130712
  Transmission Date: 20140515
  Serious: No
  Sender: FDA-Public Use
  Company Number: US-009507513-1307USA005478

PATIENT
  Sex: Female

DRUGS (1)
  1. PEGINTRON [Suspect]
     Dosage: INJECTION
     Dates: start: 20130531

REACTIONS (4)
  - Incorrect product storage [Unknown]
  - Incorrect product storage [Unknown]
  - Poor quality drug administered [Unknown]
  - No adverse event [Unknown]
